FAERS Safety Report 8892983 (Version 1)
Quarter: 2012Q4

REPORT INFORMATION
  Report Type: 
  Country: US (occurrence: US)
  Receive Date: 20121107
  Receipt Date: 20121107
  Transmission Date: 20130627
  Serious: No
  Sender: FDA-Public Use
  Company Number: US-AMGEN-USASP2011054160

PATIENT
  Age: 47 Year
  Sex: Female
  Weight: 99.77 kg

DRUGS (16)
  1. ENBREL [Suspect]
     Indication: PRODUCT USED FOR UNKNOWN INDICATION
     Dosage: 50 mg, qwk
     Route: 058
  2. HUMALOG [Concomitant]
     Dosage: 100 ml, UNK
  3. ZOCOR [Concomitant]
     Dosage: 20 mg, UNK
  4. METHOTREXATE BIGMAR [Concomitant]
     Dosage: 2.5 mg, UNK
  5. ZYRTEC [Concomitant]
     Dosage: 10 mg, UNK
  6. BENADRYL                           /00000402/ [Concomitant]
     Dosage: 25 mg, UNK
  7. LOTREL [Concomitant]
     Dosage: UNK
  8. FOLIC ACID [Concomitant]
     Dosage: 1 mg, UNK
  9. HYDROCHLOROTHIAZIDE [Concomitant]
     Dosage: 12.5 mg, UNK
  10. LEVEMIR [Concomitant]
  11. HYDROXYZINE-2 HCL [Concomitant]
     Dosage: 10 mg, UNK
  12. VITAMIN D /00107901/ [Concomitant]
     Dosage: 1000 IU, UNK
  13. YASMIN 28 [Concomitant]
     Dosage: UNK
  14. VITAMIN B12                        /00056201/ [Concomitant]
     Dosage: 1000 UNK, UNK
  15. ASPIRIN [Concomitant]
     Dosage: 81 mg, UNK
  16. OXYCODONE [Concomitant]
     Dosage: 10 mg, UNK

REACTIONS (3)
  - Cough [Unknown]
  - Injection site urticaria [Unknown]
  - Urticaria [Unknown]
